FAERS Safety Report 20627499 (Version 1)
Quarter: 2022Q1

REPORT INFORMATION
  Report Type: Spontaneous
  Country: US (occurrence: None)
  Receive Date: 20220322
  Receipt Date: 20220322
  Transmission Date: 20220424
  Serious: Yes (unspecified)
  Sender: FDA-Public Use
  Company Number: None

PATIENT
  Age: 32 Year
  Sex: Male
  Weight: 81 kg

DRUGS (1)
  1. BUPROPION HYDROCHLORIDE [Suspect]
     Active Substance: BUPROPION HYDROCHLORIDE
     Indication: Depression
     Dosage: FREQUENCY : TWICE A DAY;?
     Route: 048
     Dates: start: 20220315, end: 20220322

REACTIONS (18)
  - Feeling abnormal [None]
  - Product substitution issue [None]
  - Headache [None]
  - Vision blurred [None]
  - Vision blurred [None]
  - Heart rate increased [None]
  - Palpitations [None]
  - Somnolence [None]
  - Sleep disorder [None]
  - Vertigo [None]
  - Tinnitus [None]
  - Confusional state [None]
  - Depression [None]
  - Depersonalisation/derealisation disorder [None]
  - Irritability [None]
  - Anger [None]
  - Suicidal ideation [None]
  - Product complaint [None]

NARRATIVE: CASE EVENT DATE: 20220315
